FAERS Safety Report 8042730-9 (Version None)
Quarter: 2012Q1

REPORT INFORMATION
  Report Type: 
  Country: None (occurrence: None)
  Receive Date: 20120112
  Receipt Date: 20120105
  Transmission Date: 20120608
  Serious: Yes (Hospitalization, Other)
  Sender: FDA-Public Use
  Company Number: US-BAYER-2011-029566

PATIENT
  Age: 39 Year
  Sex: Female
  Weight: 86.168 kg

DRUGS (4)
  1. MIDRIN [Concomitant]
     Route: 048
  2. YAZ [Suspect]
     Indication: CONTRACEPTION
     Dosage: UNK
     Route: 048
     Dates: start: 20050101, end: 20090201
  3. YASMIN [Suspect]
     Indication: CONTRACEPTION
     Dosage: UNK
     Route: 048
     Dates: start: 20050101, end: 20090201
  4. STEROID INJECTION [Concomitant]
     Indication: BACK PAIN
     Dosage: UNK
     Dates: start: 20090215

REACTIONS (11)
  - INJURY [None]
  - ANXIETY [None]
  - CEREBROVASCULAR ACCIDENT [None]
  - PSYCHOLOGICAL TRAUMA [None]
  - SUPERIOR SAGITTAL SINUS THROMBOSIS [None]
  - GRAND MAL CONVULSION [None]
  - SUBARACHNOID HAEMORRHAGE [None]
  - PAIN [None]
  - EMOTIONAL DISTRESS [None]
  - CEREBRAL HAEMORRHAGE [None]
  - NEUROLOGICAL SYMPTOM [None]
